FAERS Safety Report 12157215 (Version 1)
Quarter: 2016Q1

REPORT INFORMATION
  Report Type: Spontaneous
  Country: JP (occurrence: JP)
  Receive Date: 20160308
  Receipt Date: 20160308
  Transmission Date: 20160526
  Serious: Yes (Other)
  Sender: FDA-Public Use
  Company Number: JP-ROCHE-1722072

PATIENT
  Age: 15 Year
  Sex: Male
  Weight: 30 kg

DRUGS (8)
  1. TAMIFLU [Suspect]
     Active Substance: OSELTAMIVIR PHOSPHATE
     Indication: INFLUENZA
     Route: 048
     Dates: start: 20160201, end: 20160201
  2. GABAPEN [Concomitant]
     Active Substance: GABAPENTIN
     Route: 048
  3. LEXOTAN [Concomitant]
     Active Substance: BROMAZEPAM
     Route: 048
  4. CERCINE [Concomitant]
     Active Substance: DIAZEPAM
     Route: 048
  5. MUCOSAL (JAPAN) [Concomitant]
     Route: 048
  6. PHENOBARBITAL. [Concomitant]
     Active Substance: PHENOBARBITAL
     Route: 048
  7. NEXIUM [Concomitant]
     Active Substance: ESOMEPRAZOLE MAGNESIUM
     Route: 048
  8. ZONISAMIDE. [Concomitant]
     Active Substance: ZONISAMIDE
     Route: 048

REACTIONS (4)
  - Atelectasis [Not Recovered/Not Resolved]
  - Rash [Recovered/Resolved]
  - Pneumonia [Not Recovered/Not Resolved]
  - Respiratory failure [Recovered/Resolved]

NARRATIVE: CASE EVENT DATE: 20160202
